FAERS Safety Report 5383201-8 (Version None)
Quarter: 2007Q3

REPORT INFORMATION
  Report Type: 
  Country: None (occurrence: None)
  Receive Date: 20070705
  Receipt Date: 20070627
  Transmission Date: 20080115
  Serious: Yes (Life-Threatening, Other)
  Sender: FDA-Public Use
  Company Number: 2007US001395

PATIENT
  Age: 90 Year
  Sex: Male

DRUGS (2)
  1. AMBISOME [Suspect]
     Indication: MENINGITIS CRYPTOCOCCAL
     Dosage: 150 MG,  IV DRIP
     Route: 041
     Dates: start: 20070516, end: 20070529
  2. UNASYN [Concomitant]

REACTIONS (5)
  - DEHYDRATION [None]
  - HYPOALBUMINAEMIA [None]
  - HYPOKALAEMIA [None]
  - OEDEMA [None]
  - URINE OUTPUT INCREASED [None]
